FAERS Safety Report 23389213 (Version 7)
Quarter: 2024Q2

REPORT INFORMATION
  Report Type: Report from Study
  Country: US (occurrence: US)
  Receive Date: 20240110
  Receipt Date: 20240510
  Transmission Date: 20240716
  Serious: Yes (Hospitalization, Other)
  Sender: FDA-Public Use
  Company Number: US-002147023-NVSC2021US214159

PATIENT
  Sex: Male
  Weight: 90.703 kg

DRUGS (9)
  1. TREPROSTINIL [Suspect]
     Active Substance: TREPROSTINIL
     Dosage: 43NG/KG/MIN
     Route: 058
     Dates: start: 20210630
  2. TREPROSTINIL [Suspect]
     Active Substance: TREPROSTINIL
     Indication: Pulmonary arterial hypertension
     Dosage: UNK, CONT (20 NG/KG/MIN)
     Route: 058
     Dates: start: 20210630
  3. TREPROSTINIL [Suspect]
     Active Substance: TREPROSTINIL
     Dosage: UNK, CONT (40 NG/KG/MIN)
     Route: 058
  4. TREPROSTINIL [Suspect]
     Active Substance: TREPROSTINIL
     Dosage: UNK, CONT (40 NG/KG/ MIN)
     Route: 058
     Dates: start: 20210630
  5. TREPROSTINIL [Suspect]
     Active Substance: TREPROSTINIL
     Dosage: UNK, CONT (40 NG/KG/MIN)
     Route: 058
  6. TREPROSTINIL [Suspect]
     Active Substance: TREPROSTINIL
     Dosage: 44 UNK, CONT, 44 NG/KG/MIN
     Route: 058
     Dates: start: 20210630
  7. TREPROSTINIL [Suspect]
     Active Substance: TREPROSTINIL
     Dosage: UNK, CONT
     Route: 058
     Dates: start: 20210630
  8. TREPROSTINIL [Suspect]
     Active Substance: TREPROSTINIL
     Dosage: UNK, CONT (47 NG/KG/ MI N)
     Route: 058
     Dates: start: 20210630
  9. SILDENAFIL CITRATE [Concomitant]
     Active Substance: SILDENAFIL CITRATE
     Indication: Product used for unknown indication
     Dosage: UNK
     Route: 065

REACTIONS (20)
  - Syncope [Unknown]
  - Loss of consciousness [Unknown]
  - Fatigue [Unknown]
  - Insomnia [Recovering/Resolving]
  - Pain [Unknown]
  - Sluggishness [Unknown]
  - Hyperhidrosis [Unknown]
  - Hypertension [Unknown]
  - Feeding disorder [Recovering/Resolving]
  - Injection site warmth [Unknown]
  - Injection site erythema [Unknown]
  - Injection site swelling [Unknown]
  - Injection site pain [Recovering/Resolving]
  - Dyspnoea exertional [Unknown]
  - Infusion site infection [Unknown]
  - Catheter site pain [Unknown]
  - Dyspnoea [Unknown]
  - Injection site bruising [Unknown]
  - Wrong technique in product usage process [Unknown]
  - Product dose omission issue [Unknown]
